FAERS Safety Report 6983227-4 (Version None)
Quarter: 2010Q3

REPORT INFORMATION
  Report Type: 
  Country: None (occurrence: None)
  Receive Date: 20100914
  Receipt Date: 20100708
  Transmission Date: 20110219
  Serious: Yes (Disabling, Other)
  Sender: FDA-Public Use
  Company Number: US-PFIZER INC-2010085994

PATIENT
  Sex: Male

DRUGS (8)
  1. LYRICA [Suspect]
     Indication: PAIN
     Dosage: 100 MG, 3X/DAY
  2. AMBIEN [Concomitant]
     Indication: SLEEP DISORDER
     Dosage: 5 MG, 1X/DAY
     Route: 048
  3. BACTRIM [Concomitant]
     Indication: PNEUMOCYSTIS JIROVECI PNEUMONIA
     Dosage: 800 MG, 3X/WEEK
     Route: 048
  4. KALETRA [Concomitant]
     Indication: HIV INFECTION
     Dosage: 400/100, 2X/DAY
     Route: 048
  5. TRUVADA [Concomitant]
     Indication: HIV INFECTION
     Dosage: 200/300 MG, DAILY
     Route: 048
  6. MIRTAZAPINE [Concomitant]
     Indication: DEPRESSION
     Dosage: 7.5 MG, 1X/DAY
     Route: 048
  7. NEURONTIN [Concomitant]
     Indication: PAIN IN EXTREMITY
     Dosage: 300 MG, UNK
     Route: 048
  8. TYLENOL W/ CODEINE [Concomitant]
     Indication: PAIN
     Dosage: 300/30
     Route: 048

REACTIONS (4)
  - GAIT DISTURBANCE [None]
  - INTENTIONAL DRUG MISUSE [None]
  - SPEECH DISORDER [None]
  - VISUAL IMPAIRMENT [None]
